FAERS Safety Report 7476228-3 (Version None)
Quarter: 2011Q2

REPORT INFORMATION
  Report Type: 
  Country: None (occurrence: None)
  Receive Date: 20110505
  Receipt Date: 20110421
  Transmission Date: 20111010
  Serious: Yes (Hospitalization)
  Sender: FDA-Public Use
  Company Number: 2011GW000266

PATIENT
  Sex: Male

DRUGS (1)
  1. ZYCLARA [Suspect]
     Indication: ACTINIC KERATOSIS
     Dosage: 3.75 PCT;QD;TOP
     Route: 061

REACTIONS (6)
  - HEADACHE [None]
  - ERYTHEMA [None]
  - APPLICATION SITE INFECTION [None]
  - UNEVALUABLE EVENT [None]
  - CHEST PAIN [None]
  - MALAISE [None]
